FAERS Safety Report 4466049-8 (Version None)
Quarter: 2004Q3

REPORT INFORMATION
  Report Type: 
  Country: None (occurrence: None)
  Receive Date: 20040930
  Receipt Date: 20040914
  Transmission Date: 20050211
  Serious: Yes (Hospitalization, Disabling)
  Sender: FDA-Public Use
  Company Number: A01200403813

PATIENT
  Age: 81 Year
  Sex: Female

DRUGS (15)
  1. KAYEXALATE [Suspect]
     Indication: HYPERKALAEMIA
     Dosage: SEE IMAGE
     Route: 048
     Dates: start: 19990608, end: 19990706
  2. KAYEXALATE [Suspect]
     Indication: HYPERKALAEMIA
     Dosage: SEE IMAGE
     Route: 048
     Dates: start: 19991102, end: 20000822
  3. KAYEXALATE [Suspect]
     Indication: HYPERKALAEMIA
     Dosage: SEE IMAGE
     Route: 048
     Dates: start: 20000919, end: 20001128
  4. KAYEXALATE [Suspect]
     Indication: HYPERKALAEMIA
     Dosage: SEE IMAGE
     Route: 048
     Dates: start: 20001128, end: 20011016
  5. KAYEXALATE [Suspect]
     Indication: HYPERKALAEMIA
     Dosage: SEE IMAGE
     Route: 048
     Dates: start: 20011016, end: 20040406
  6. KAYEXALATE [Suspect]
     Indication: HYPERKALAEMIA
     Dosage: SEE IMAGE
     Route: 048
     Dates: start: 20040406, end: 20040430
  7. KAYEXALATE [Suspect]
     Indication: HYPERKALAEMIA
     Dosage: SEE IMAGE
     Route: 048
     Dates: start: 20040430, end: 20040702
  8. DIOVAN [Concomitant]
  9. LIPOVAS (SIMVASTATIN) [Concomitant]
  10. TANATRIL (IMIDAPRIL HYDROCHLORIDE) [Concomitant]
  11. LASIX [Concomitant]
  12. LANDEL (EFONIDIPINE HYDROCHLORIDE) [Concomitant]
  13. SENNOSIDE (SENNA) [Concomitant]
  14. LAC-B (LACTOBACILLUS BIFIDUS, LYOPHILIZED) [Concomitant]
  15. MAGNESIUM OXIDE [Concomitant]

REACTIONS (12)
  - BLOOD POTASSIUM DECREASED [None]
  - CONSTIPATION [None]
  - DRUG INEFFECTIVE [None]
  - FAECALOMA [None]
  - GASTROINTESTINAL INJURY [None]
  - OEDEMA PERIPHERAL [None]
  - PERITONITIS [None]
  - POSTOPERATIVE WOUND COMPLICATION [None]
  - RECTAL HAEMORRHAGE [None]
  - RECTAL PERFORATION [None]
  - REFUSAL OF TREATMENT BY PATIENT [None]
  - WOUND ABSCESS [None]
